FAERS Safety Report 9745345 (Version 1)
Quarter: 2013Q4

REPORT INFORMATION
  Report Type: Spontaneous
  Country: US (occurrence: None)
  Receive Date: 20131206
  Receipt Date: 20131206
  Transmission Date: 20140711
  Serious: Yes (Other)
  Sender: FDA-Public Use
  Company Number: None

PATIENT
  Age: 65 Year
  Sex: Male
  Weight: 79.38 kg

DRUGS (1)
  1. CARAFATE [Suspect]
     Indication: POSTOPERATIVE CARE
     Dosage: 2 TSP; THREE TIMES DAILY
     Route: 048
     Dates: start: 20131121, end: 20131124

REACTIONS (3)
  - Headache [None]
  - Pyrexia [None]
  - Rash generalised [None]
